FAERS Safety Report 16146841 (Version 1)
Quarter: 2019Q2

REPORT INFORMATION
  Report Type: Spontaneous
  Country: US (occurrence: US)
  Receive Date: 20190402
  Receipt Date: 20190402
  Transmission Date: 20190711
  Serious: No
  Sender: FDA-Public Use
  Company Number: US-BAUSCH-BL-2019-008613

PATIENT
  Age: 1 Year
  Sex: Male

DRUGS (6)
  1. KLONOPIN [Concomitant]
     Active Substance: CLONAZEPAM
     Indication: PRODUCT USED FOR UNKNOWN INDICATION
  2. DIAZEGEL [Suspect]
     Active Substance: DIAZEPAM
     Dosage: PATIENT TOOK A DOSE IN DEC/2018 OR JAN/2019
     Route: 065
  3. DIAZEGEL [Suspect]
     Active Substance: DIAZEPAM
     Indication: SEIZURE
     Dosage: LAST DOSE WAS IN APPROXIMATELY 2017
     Route: 065
     Dates: start: 2013, end: 2017
  4. PROPIONATE [Concomitant]
     Indication: PRODUCT USED FOR UNKNOWN INDICATION
  5. KEPPRA [Concomitant]
     Active Substance: LEVETIRACETAM
     Indication: PRODUCT USED FOR UNKNOWN INDICATION
  6. TOPIRAMATE. [Concomitant]
     Active Substance: TOPIRAMATE
     Indication: SEIZURE

REACTIONS (4)
  - Hyperhidrosis [Recovered/Resolved]
  - Somnolence [Recovered/Resolved]
  - Influenza [Unknown]
  - Lethargy [Recovered/Resolved]

NARRATIVE: CASE EVENT DATE: 2013
